FAERS Safety Report 9219631 (Version 2)
Quarter: 2013Q2

REPORT INFORMATION
  Report Type: Spontaneous
  Country: DE (occurrence: DE)
  Receive Date: 20130409
  Receipt Date: 20130613
  Transmission Date: 20140414
  Serious: Yes (Hospitalization)
  Sender: FDA-Public Use
  Company Number: DE-ROCHE-1189966

PATIENT
  Sex: Male

DRUGS (2)
  1. LUCENTIS [Suspect]
     Indication: AGE-RELATED MACULAR DEGENERATION
     Route: 050
     Dates: start: 20130107
  2. LUCENTIS [Suspect]
     Route: 050
     Dates: start: 20130204, end: 20130204

REACTIONS (1)
  - Cerebrovascular accident [Recovered/Resolved with Sequelae]
